FAERS Safety Report 20710427 (Version 1)
Quarter: 2022Q2

REPORT INFORMATION
  Report Type: Spontaneous
  Country: FI (occurrence: FI)
  Receive Date: 20220414
  Receipt Date: 20220414
  Transmission Date: 20220720
  Serious: Yes (Hospitalization, Other)
  Sender: FDA-Public Use
  Company Number: FI-AstraZeneca-2022A110300

PATIENT
  Age: 49 Year
  Sex: Female

DRUGS (2)
  1. METFORMIN [Suspect]
     Active Substance: METFORMIN HYDROCHLORIDE
     Indication: Product used for unknown indication
     Dosage: UNK
  2. DAPAGLIFLOZIN [Suspect]
     Active Substance: DAPAGLIFLOZIN
     Indication: Type 2 diabetes mellitus
     Dosage: 10 MILLIGRAM
     Route: 048

REACTIONS (1)
  - Ketoacidosis [Unknown]

NARRATIVE: CASE EVENT DATE: 20190101
